FAERS Safety Report 5141288-1 (Version None)
Quarter: 2006Q4

REPORT INFORMATION
  Report Type: 
  Country: None (occurrence: None)
  Receive Date: 20061101
  Receipt Date: 20061004
  Transmission Date: 20070319
  Serious: Yes (Hospitalization)
  Sender: FDA-Public Use
  Company Number: US-AMGEN-US197662

PATIENT
  Sex: Female

DRUGS (1)
  1. ENBREL [Suspect]
     Indication: PSORIATIC ARTHROPATHY
     Route: 058
     Dates: start: 20010501

REACTIONS (6)
  - ARTHRALGIA [None]
  - BACK PAIN [None]
  - BONE CYST [None]
  - CYST [None]
  - KNEE ARTHROPLASTY [None]
  - PAIN IN EXTREMITY [None]
